FAERS Safety Report 7820336-1 (Version None)
Quarter: 2011Q4

REPORT INFORMATION
  Report Type: 
  Country: None (occurrence: None)
  Receive Date: 20111013
  Receipt Date: 20110926
  Transmission Date: 20120403
  Serious: Yes (Other)
  Sender: FDA-Public Use
  Company Number: JPI-P-011086

PATIENT
  Age: 58 Year
  Sex: Female

DRUGS (9)
  1. MODAFINIL [Concomitant]
  2. FLAXSEED OIL [Concomitant]
  3. ARMODAFINIL [Concomitant]
  4. MAGNESIUM [Concomitant]
  5. ESOMEPRAZOLE SODIUM [Concomitant]
  6. ACYCLOVIR [Concomitant]
  7. CALCIUM CARBONATE [Concomitant]
  8. LOVAZA [Concomitant]
  9. XYREM [Suspect]
     Indication: NARCOLEPSY
     Dosage: 4.5 GM (2.25 GM, 2 IN 1 D), ORAL
     Route: 048
     Dates: start: 20100413, end: 20100101

REACTIONS (23)
  - NON-HODGKIN'S LYMPHOMA [None]
  - HYPERHIDROSIS [None]
  - WEIGHT DECREASED [None]
  - DIZZINESS [None]
  - BLOOD PRESSURE INCREASED [None]
  - MOANING [None]
  - BLADDER PAIN [None]
  - DUODENITIS [None]
  - HIATUS HERNIA [None]
  - ABDOMINAL PAIN UPPER [None]
  - SWELLING FACE [None]
  - TREATMENT NONCOMPLIANCE [None]
  - NAUSEA [None]
  - PHARYNGEAL OEDEMA [None]
  - HEPATOMEGALY [None]
  - OESOPHAGEAL DISORDER [None]
  - GASTROOESOPHAGEAL REFLUX DISEASE [None]
  - FACIAL PAIN [None]
  - PHOTOPSIA [None]
  - DISEASE RECURRENCE [None]
  - TOOTH DISORDER [None]
  - CHEST PAIN [None]
  - AURA [None]
